FAERS Safety Report 5239613-6 (Version None)
Quarter: 2007Q1

REPORT INFORMATION
  Report Type: 
  Country: None (occurrence: None)
  Receive Date: 20070216
  Receipt Date: 20070214
  Transmission Date: 20070707
  Serious: Yes (Hospitalization)
  Sender: FDA-Public Use
  Company Number: JP-JPN-A20052041

PATIENT
  Age: 30 Year
  Sex: Female

DRUGS (4)
  1. FLOLAN [Suspect]
     Indication: EISENMENGER'S SYNDROME
     Route: 042
     Dates: start: 20021212
  2. WARFARIN POTASSIUM [Concomitant]
     Route: 048
  3. FUROSEMIDE [Concomitant]
     Route: 048
  4. SPIRONOLACTONE [Concomitant]
     Route: 048

REACTIONS (2)
  - ASTHMA [None]
  - COUGH [None]
